FAERS Safety Report 15409572 (Version 11)
Quarter: 2019Q3

REPORT INFORMATION
  Report Type: Spontaneous
  Country: US (occurrence: US)
  Receive Date: 20180920
  Receipt Date: 20190913
  Transmission Date: 20191004
  Serious: Yes (Hospitalization)
  Sender: FDA-Public Use
  Company Number: US-ACTELION-A-NJ2018-179047

PATIENT
  Age: 52 Year
  Sex: Female
  Weight: 147.39 kg

DRUGS (13)
  1. VELETRI [Suspect]
     Active Substance: EPOPROSTENOL
     Indication: PULMONARY ARTERIAL HYPERTENSION
     Dosage: 54 NG/KG, PER MIN
     Route: 042
  2. VELETRI [Suspect]
     Active Substance: EPOPROSTENOL
     Dosage: UNK
     Route: 042
     Dates: start: 20131024
  3. TRACLEER [Suspect]
     Active Substance: BOSENTAN
     Indication: PULMONARY ARTERIAL HYPERTENSION
     Dosage: 125 MG, BID
     Route: 048
     Dates: start: 2012
  4. BETADINE [Concomitant]
     Active Substance: POVIDONE-IODINE
  5. PREDNISONE. [Concomitant]
     Active Substance: PREDNISONE
  6. COUMADIN [Concomitant]
     Active Substance: WARFARIN SODIUM
  7. LASIX [Concomitant]
     Active Substance: FUROSEMIDE
     Dosage: UNK
  8. REMODULIN [Concomitant]
     Active Substance: TREPROSTINIL
  9. CETIRIZINE [Concomitant]
     Active Substance: CETIRIZINE HYDROCHLORIDE
  10. VELETRI [Suspect]
     Active Substance: EPOPROSTENOL
     Dosage: 56 NG/KG, PER MIN
     Route: 042
  11. TORSEMIDE. [Concomitant]
     Active Substance: TORSEMIDE
     Dosage: 50 MG, QD
  12. VELETRI [Suspect]
     Active Substance: EPOPROSTENOL
     Dosage: 64 NG/KG, PER MIN
     Route: 042
     Dates: start: 20131024
  13. SILDENAFIL. [Concomitant]
     Active Substance: SILDENAFIL
     Dosage: 40 UNK, TID
     Dates: start: 2012

REACTIONS (35)
  - Catheter site infection [Not Recovered/Not Resolved]
  - Sepsis [Not Recovered/Not Resolved]
  - Catheter site erythema [Not Recovered/Not Resolved]
  - Product dose omission [Unknown]
  - Hospitalisation [Unknown]
  - Platelet count decreased [Recovering/Resolving]
  - Corynebacterium test positive [Not Recovered/Not Resolved]
  - Diarrhoea [Not Recovered/Not Resolved]
  - Haemodynamic instability [Unknown]
  - Headache [Unknown]
  - Iron deficiency [Recovering/Resolving]
  - Catheter site discharge [Not Recovered/Not Resolved]
  - Fluid overload [Unknown]
  - Dyspnoea [Unknown]
  - Rash [Not Recovered/Not Resolved]
  - Pleural effusion [Unknown]
  - Haemoglobin decreased [Recovering/Resolving]
  - Immune thrombocytopenic purpura [Recovering/Resolving]
  - Catheter management [Recovered/Resolved]
  - Catheter site pain [Not Recovered/Not Resolved]
  - Device occlusion [Recovered/Resolved]
  - Epistaxis [Recovering/Resolving]
  - Chest pain [Recovered/Resolved]
  - Device leakage [Recovered/Resolved]
  - Polyuria [Unknown]
  - Anaemia [Recovering/Resolving]
  - Respiratory failure [Recovering/Resolving]
  - Haematocrit decreased [Recovering/Resolving]
  - Staphylococcus test positive [Not Recovered/Not Resolved]
  - Device malfunction [Recovered/Resolved]
  - Condition aggravated [Not Recovered/Not Resolved]
  - Device breakage [Recovered/Resolved]
  - Pulmonary congestion [Unknown]
  - Flushing [Unknown]
  - Device failure [Unknown]

NARRATIVE: CASE EVENT DATE: 20180908
